FAERS Safety Report 15959045 (Version 2)
Quarter: 2019Q1

REPORT INFORMATION
  Report Type: Spontaneous
  Country: AT (occurrence: AT)
  Receive Date: 20190214
  Receipt Date: 20190306
  Transmission Date: 20190417
  Serious: Yes (Other)
  Sender: FDA-Public Use
  Company Number: AT-SUN PHARMACEUTICAL INDUSTRIES LTD-2019RR-198900

PATIENT
  Age: 67 Year
  Sex: Male

DRUGS (36)
  1. SUBOXONE [Suspect]
     Active Substance: BUPRENORPHINE HYDROCHLORIDE\NALOXONE HYDROCHLORIDE
     Dosage: 2 MG/ 0.5 MG  UP TO 6 TIMES DAILY
     Route: 065
     Dates: start: 201601, end: 201601
  2. QUETIAPINE. [Suspect]
     Active Substance: QUETIAPINE
     Indication: PRODUCT USED FOR UNKNOWN INDICATION
     Dosage: 25 MG, 0-0-1
     Route: 065
  3. BUPRENORPHINE. [Suspect]
     Active Substance: BUPRENORPHINE
     Dosage: 140 MCG, UNK
     Route: 062
     Dates: start: 20150824, end: 20150828
  4. DULOXETINE. [Suspect]
     Active Substance: DULOXETINE
     Dosage: 60 MG, 2-0-0
     Route: 065
  5. PANTOPRAZOLE [Suspect]
     Active Substance: PANTOPRAZOLE
     Indication: PRODUCT USED FOR UNKNOWN INDICATION
     Dosage: 40 MG, 1-0-0
     Route: 065
     Dates: start: 201308, end: 201309
  6. EFFENTORA [Suspect]
     Active Substance: FENTANYL CITRATE
     Dosage: 400 MCG, UP TO 3 TIMES DAILY
     Route: 065
     Dates: start: 20150824, end: 20150828
  7. METOCLOPRAMIDE. [Suspect]
     Active Substance: METOCLOPRAMIDE
     Indication: PRODUCT USED FOR UNKNOWN INDICATION
     Dosage: UNK
     Route: 065
     Dates: start: 201308, end: 201309
  8. SUBOXONE [Suspect]
     Active Substance: BUPRENORPHINE HYDROCHLORIDE\NALOXONE HYDROCHLORIDE
     Indication: PRODUCT USED FOR UNKNOWN INDICATION
     Dosage: 12 MG - 0 -  4 MG
     Route: 065
     Dates: start: 201601, end: 201601
  9. CATAPRESAN [Suspect]
     Active Substance: CLONIDINE
     Indication: PRODUCT USED FOR UNKNOWN INDICATION
     Dosage: 0.15 MG, PRN
     Route: 065
  10. EFFENTORA [Suspect]
     Active Substance: FENTANYL CITRATE
     Indication: PRODUCT USED FOR UNKNOWN INDICATION
     Dosage: 100 MCG, 4 TIMES DAILY
     Route: 065
     Dates: start: 201308, end: 201309
  11. EFFENTORA [Suspect]
     Active Substance: FENTANYL CITRATE
     Dosage: 600 MCG, UNK
     Route: 065
     Dates: start: 20161014, end: 20161102
  12. HYDAL [Suspect]
     Active Substance: HYDROMORPHONE HYDROCHLORIDE
     Dosage: 5.2 MG, UP TO 4 TIMES DAILY
     Route: 065
     Dates: start: 201308, end: 201309
  13. LEXOTANIL [Suspect]
     Active Substance: BROMAZEPAM
     Indication: PRODUCT USED FOR UNKNOWN INDICATION
     Dosage: 3 MG, 1/2-0-0
     Route: 065
  14. SEROQUEL [Suspect]
     Active Substance: QUETIAPINE FUMARATE
     Dosage: 0-0-100 MG
     Route: 065
     Dates: start: 20150824, end: 20150828
  15. TEMESTA (LORAZEPAM) [Suspect]
     Active Substance: LORAZEPAM
     Indication: PRODUCT USED FOR UNKNOWN INDICATION
     Dosage: 2.5 MG, UNK
     Route: 065
  16. PANTOPRAZOLE [Suspect]
     Active Substance: PANTOPRAZOLE
     Dosage: 40 MG, 1-0-1
     Route: 065
  17. DIPIDOLOR [Suspect]
     Active Substance: PIRITRAMIDE
     Indication: PRODUCT USED FOR UNKNOWN INDICATION
     Dosage: 15 MG, UNK
     Route: 065
  18. EFFENTORA [Suspect]
     Active Substance: FENTANYL CITRATE
     Dosage: 400 MCG, 2-3 TIMES DAILY
     Route: 065
  19. PANTOPRAZOLE [Suspect]
     Active Substance: PANTOPRAZOLE
     Dosage: 40 MG, 1-0-0
     Route: 065
  20. BUPRENORPHINE. [Suspect]
     Active Substance: BUPRENORPHINE
     Indication: PRODUCT USED FOR UNKNOWN INDICATION
     Dosage: 105 MCG, UNK
     Route: 062
     Dates: start: 201308, end: 201309
  21. BUPRENORPHINE. [Suspect]
     Active Substance: BUPRENORPHINE
     Dosage: 140 MCG, UNK
     Route: 062
     Dates: start: 20161014, end: 20161102
  22. DRONABINOL. [Suspect]
     Active Substance: DRONABINOL
     Indication: PRODUCT USED FOR UNKNOWN INDICATION
     Dosage: 6 DROP, 3 TIMES
     Route: 065
     Dates: start: 201308, end: 201309
  23. EFFENTORA [Suspect]
     Active Substance: FENTANYL CITRATE
     Dosage: 400 MCG, 2 TABLETS
     Route: 065
     Dates: start: 20150824, end: 20150828
  24. HYDAL [Suspect]
     Active Substance: HYDROMORPHONE HYDROCHLORIDE
     Indication: PRODUCT USED FOR UNKNOWN INDICATION
     Dosage: 5.2 MG, 2-3 TIMES DAILY
     Route: 065
     Dates: start: 201308, end: 201309
  25. LYRICA [Suspect]
     Active Substance: PREGABALIN
     Indication: PRODUCT USED FOR UNKNOWN INDICATION
     Dosage: 75 MG, 0-0-1
     Route: 065
  26. MIRTAZAPIN [Suspect]
     Active Substance: MIRTAZAPINE
     Indication: PRODUCT USED FOR UNKNOWN INDICATION
     Dosage: UNK
     Route: 065
  27. SUBOXONE [Suspect]
     Active Substance: BUPRENORPHINE HYDROCHLORIDE\NALOXONE HYDROCHLORIDE
     Dosage: 2 MG / 0.5 MG UP TO 4 TIMES IN CASE OF PAIN ATTACK
     Route: 065
  28. SUBOXONE [Suspect]
     Active Substance: BUPRENORPHINE HYDROCHLORIDE\NALOXONE HYDROCHLORIDE
     Dosage: 8 MG / 2 MG
     Route: 060
  29. BUPRENORPHINE. [Suspect]
     Active Substance: BUPRENORPHINE
     Dosage: 70 MCG, UNK
     Route: 062
     Dates: start: 20130826, end: 20130919
  30. DULOXETINE. [Suspect]
     Active Substance: DULOXETINE
     Indication: PRODUCT USED FOR UNKNOWN INDICATION
     Dosage: 60 MG, 1-0-1
     Route: 065
     Dates: start: 201308, end: 201309
  31. HYDAL [Suspect]
     Active Substance: HYDROMORPHONE HYDROCHLORIDE
     Dosage: 5.2 MG, UP TO 3 TIMES DAILY
     Route: 065
  32. IMODIUM [Suspect]
     Active Substance: LOPERAMIDE HYDROCHLORIDE
     Indication: PRODUCT USED FOR UNKNOWN INDICATION
     Dosage: UNK
     Route: 065
  33. ONDANSETRON [Suspect]
     Active Substance: ONDANSETRON
     Indication: PRODUCT USED FOR UNKNOWN INDICATION
     Dosage: UNK
     Route: 065
  34. SOLUVIT [Suspect]
     Active Substance: VITAMINS
     Indication: PRODUCT USED FOR UNKNOWN INDICATION
     Dosage: UNK
     Route: 065
  35. SEROQUEL [Suspect]
     Active Substance: QUETIAPINE FUMARATE
     Indication: PRODUCT USED FOR UNKNOWN INDICATION
     Dosage: 25 MG, 0-0-0-1
     Route: 065
  36. TEMESTA (LORAZEPAM) [Suspect]
     Active Substance: LORAZEPAM
     Dosage: 2.5 MG, UNK
     Route: 065
     Dates: start: 201308, end: 201309

REACTIONS (10)
  - Tremor [Unknown]
  - Depression [Unknown]
  - Drug withdrawal syndrome [Recovered/Resolved]
  - Diarrhoea [Unknown]
  - Drug dependence [Unknown]
  - Abdominal pain [Unknown]
  - Nausea [Unknown]
  - Therapeutic response decreased [Unknown]
  - Decreased appetite [Unknown]
  - Vertigo [Unknown]
